FAERS Safety Report 6996343-8 (Version None)
Quarter: 2010Q3

REPORT INFORMATION
  Report Type: 
  Country: None (occurrence: None)
  Receive Date: 20100918
  Receipt Date: 20090210
  Transmission Date: 20110219
  Serious: No
  Sender: FDA-Public Use
  Company Number: US-WYE-H08156909

PATIENT
  Sex: Female
  Weight: 88.53 kg

DRUGS (1)
  1. CONJUGATED ESTROGENS [Suspect]
     Indication: VULVOVAGINAL DRYNESS
     Route: 048
     Dates: start: 20090101

REACTIONS (2)
  - PAIN [None]
  - PRURITUS GENERALISED [None]
